FAERS Safety Report 6123682-5 (Version None)
Quarter: 2009Q1

REPORT INFORMATION
  Report Type: 
  Country: None (occurrence: None)
  Receive Date: 20090317
  Receipt Date: 20090305
  Transmission Date: 20090719
  Serious: Yes (Other)
  Sender: FDA-Public Use
  Company Number: 2009AP000919

PATIENT
  Age: 54 Year
  Sex: Female

DRUGS (1)
  1. RISPERIDONE [Suspect]
     Dates: start: 20060101

REACTIONS (3)
  - BLOOD PROLACTIN INCREASED [None]
  - INTRACRANIAL ANEURYSM [None]
  - PITUITARY TUMOUR BENIGN [None]
